FAERS Safety Report 16826298 (Version 1)
Quarter: 2019Q3

REPORT INFORMATION
  Report Type: Report from Study
  Country: US (occurrence: US)
  Receive Date: 20190919
  Receipt Date: 20190919
  Transmission Date: 20191005
  Serious: Yes (Hospitalization)
  Sender: FDA-Public Use
  Company Number: US-BAYER-2019-166831

PATIENT
  Age: 77 Year
  Sex: Female

DRUGS (7)
  1. BETASERON [Suspect]
     Active Substance: INTERFERON BETA-1B
     Indication: RELAPSING-REMITTING MULTIPLE SCLEROSIS
     Dosage: UNK
     Dates: start: 20101115, end: 20161229
  2. COUMADIN [Concomitant]
     Active Substance: WARFARIN SODIUM
  3. BETASERON [Suspect]
     Active Substance: INTERFERON BETA-1B
     Indication: RELAPSING-REMITTING MULTIPLE SCLEROSIS
     Dosage: 8 MIU EVERY 48 HOUR
     Route: 058
     Dates: start: 20161230
  4. BETASERON [Suspect]
     Active Substance: INTERFERON BETA-1B
     Indication: RELAPSING-REMITTING MULTIPLE SCLEROSIS
     Dosage: UNK
     Dates: start: 20050601, end: 20100301
  5. BETASERON [Suspect]
     Active Substance: INTERFERON BETA-1B
     Indication: RELAPSING-REMITTING MULTIPLE SCLEROSIS
     Dosage: UNK
     Dates: start: 19940312, end: 20031221
  6. BACLOFEN. [Concomitant]
     Active Substance: BACLOFEN
  7. MECLOZINE HYDROCHLORIDE [Concomitant]
     Active Substance: MECLOZINE DIHYDROCHLORIDE

REACTIONS (8)
  - Lymphoedema [Not Recovered/Not Resolved]
  - Pain in extremity [Recovered/Resolved]
  - Bladder dysfunction [Recovered/Resolved]
  - Hip arthroplasty [Recovered/Resolved]
  - Osteomyelitis [Recovered/Resolved]
  - Visual impairment [Recovered/Resolved]
  - Leg amputation [None]
  - Fall [Recovered/Resolved]

NARRATIVE: CASE EVENT DATE: 201802
